FAERS Safety Report 7561534-4 (Version None)
Quarter: 2011Q2

REPORT INFORMATION
  Report Type: 
  Country: None (occurrence: None)
  Receive Date: 20110621
  Receipt Date: 20100813
  Transmission Date: 20111010
  Serious: No
  Sender: FDA-Public Use
  Company Number: US-ASTRAZENECA-2010SE38164

PATIENT
  Age: 85 Year
  Sex: Female

DRUGS (1)
  1. PULMICORT FLEXHALER [Suspect]
     Indication: PULMONARY FIBROSIS
     Route: 055
     Dates: start: 20100801

REACTIONS (3)
  - COUGH [None]
  - INCORRECT DOSE ADMINISTERED BY DEVICE [None]
  - DRUG DOSE OMISSION [None]
